FAERS Safety Report 6190206-6 (Version None)
Quarter: 2009Q2

REPORT INFORMATION
  Report Type: 
  Country: None (occurrence: None)
  Receive Date: 20090427
  Receipt Date: 20080317
  Transmission Date: 20091009
  Serious: Yes (Disabling)
  Sender: FDA-Public Use
  Company Number: WAES 0803USA02826

PATIENT
  Age: 11 Year
  Sex: Male
  Weight: 45.3597 kg

DRUGS (2)
  1. SINGULAIR [Suspect]
     Indication: ASTHMA
     Dosage: 4 MG/DAILY/PO
     Route: 048
     Dates: start: 20060101
  2. SINGULAIR [Suspect]
     Indication: HYPERSENSITIVITY
     Dosage: 4 MG/DAILY/PO
     Route: 048
     Dates: start: 20060101

REACTIONS (2)
  - HEADACHE [None]
  - UNDERDOSE [None]
